FAERS Safety Report 7882674-6 (Version None)
Quarter: 2011Q4

REPORT INFORMATION
  Report Type: 
  Country: None (occurrence: None)
  Receive Date: 20111101
  Receipt Date: 20110617
  Transmission Date: 20120403
  Serious: No
  Sender: FDA-Public Use
  Company Number: US-AMGEN-USASP2011026625

PATIENT
  Age: 60 Year
  Sex: Female

DRUGS (3)
  1. ENBREL [Suspect]
     Indication: RHEUMATOID ARTHRITIS
     Dosage: 50 MG, QWK
     Dates: start: 20110401
  2. ENBREL [Suspect]
     Dates: start: 20110401
  3. ADVAIR DISKUS 100/50 [Concomitant]
     Dosage: UNK

REACTIONS (4)
  - ORAL FUNGAL INFECTION [None]
  - INJECTION SITE REACTION [None]
  - VULVOVAGINAL MYCOTIC INFECTION [None]
  - INJECTION SITE ERYTHEMA [None]
